FAERS Safety Report 7081586-8 (Version None)
Quarter: 2010Q4

REPORT INFORMATION
  Report Type: 
  Country: None (occurrence: None)
  Receive Date: 20101103
  Receipt Date: 20101029
  Transmission Date: 20110411
  Serious: Yes (Death)
  Sender: FDA-Public Use
  Company Number: BE-JNJFOC-20101007765

PATIENT
  Age: 35 Year
  Sex: Male

DRUGS (3)
  1. INVEGA [Suspect]
     Indication: ILL-DEFINED DISORDER
     Route: 048
  2. ALCOHOL [Suspect]
     Indication: ALCOHOL ABUSE
  3. TRANXENE [Concomitant]
     Indication: ILL-DEFINED DISORDER

REACTIONS (2)
  - ALCOHOL ABUSE [None]
  - PSYCHOTIC DISORDER [None]
